FAERS Safety Report 5736219-7 (Version None)
Quarter: 2008Q2

REPORT INFORMATION
  Report Type: 
  Country: None (occurrence: None)
  Receive Date: 20080513
  Receipt Date: 20080502
  Transmission Date: 20081010
  Serious: Yes (Death)
  Sender: FDA-Public Use
  Company Number: US-MERCK-0805USA00340

PATIENT
  Age: 46 Year
  Sex: Female
  Weight: 94 kg

DRUGS (17)
  1. SINGULAIR [Suspect]
     Indication: ASTHMA
     Route: 048
  2. TRAZODONE HYDROCHLORIDE [Concomitant]
     Indication: DEPRESSION
     Route: 065
  3. DETROL [Concomitant]
     Route: 065
  4. ADVAIR DISKUS 100/50 [Concomitant]
     Indication: ASTHMA
     Route: 065
  5. LIDOCAINE [Concomitant]
     Indication: PAIN
     Route: 065
  6. DURAGESIC-100 [Concomitant]
     Indication: PAIN
     Route: 065
  7. SEROQUEL [Concomitant]
     Indication: HALLUCINATION, AUDITORY
     Route: 065
  8. PREVACID [Concomitant]
     Indication: GASTROOESOPHAGEAL REFLUX DISEASE
     Route: 065
  9. SOMA [Concomitant]
     Indication: PAIN
     Route: 065
  10. MAXALT [Concomitant]
     Indication: MIGRAINE
     Route: 065
  11. LOPRESSOR [Concomitant]
     Indication: BLOOD PRESSURE
     Route: 065
  12. ABILIFY [Concomitant]
     Indication: SCHIZOAFFECTIVE DISORDER
     Route: 065
  13. ALBUTEROL [Concomitant]
     Indication: ASTHMA
     Route: 065
  14. SYNTHROID [Concomitant]
     Indication: THYROID DISORDER
     Route: 065
  15. KLONOPIN [Concomitant]
     Route: 065
  16. PROZAC [Suspect]
     Indication: DEPRESSION
     Route: 065
     Dates: start: 20050101
  17. MOBIC [Concomitant]
     Indication: PAIN
     Route: 065

REACTIONS (1)
  - COMPLETED SUICIDE [None]
